FAERS Safety Report 11803490 (Version 1)
Quarter: 2015Q4

REPORT INFORMATION
  Report Type: Spontaneous
  Country: CA (occurrence: CA)
  Receive Date: 20151204
  Receipt Date: 20151204
  Transmission Date: 20160305
  Serious: Yes (Other)
  Sender: FDA-Public Use
  Company Number: CA-TEVA-613900ACC

PATIENT
  Age: 77 Year
  Sex: Male

DRUGS (10)
  1. ATROVENT [Concomitant]
     Active Substance: IPRATROPIUM BROMIDE
  2. OXAZEPAM. [Concomitant]
     Active Substance: OXAZEPAM
  3. CRESTOR [Concomitant]
     Active Substance: ROSUVASTATIN CALCIUM
  4. DOXEPIN [Concomitant]
     Active Substance: DOXEPIN
  5. GABAPENTIN. [Suspect]
     Active Substance: GABAPENTIN
     Indication: PARAESTHESIA
     Dosage: 300 MILLIGRAM DAILY;
     Route: 048
  6. ASA [Concomitant]
     Active Substance: ASPIRIN
  7. AVELOX [Concomitant]
     Active Substance: MOXIFLOXACIN HYDROCHLORIDE
  8. PAXIL [Concomitant]
     Active Substance: PAROXETINE HYDROCHLORIDE
  9. FINASTERIDE. [Concomitant]
     Active Substance: FINASTERIDE
  10. ISORDIL [Concomitant]
     Active Substance: ISOSORBIDE DINITRATE

REACTIONS (2)
  - Anxiety [Unknown]
  - Feeling abnormal [Unknown]
